FAERS Safety Report 17459098 (Version 1)
Quarter: 2020Q1

REPORT INFORMATION
  Report Type: Spontaneous
  Country: US (occurrence: US)
  Receive Date: 20200225
  Receipt Date: 20200225
  Transmission Date: 20200409
  Serious: No
  Sender: FDA-Public Use
  Company Number: US-IGSA-SR10009008

PATIENT
  Age: 74 Year
  Sex: Male
  Weight: 86 kg

DRUGS (7)
  1. OMEPRAZOLE. [Concomitant]
     Active Substance: OMEPRAZOLE
  2. PROLASTIN-C LIQUID [Suspect]
     Active Substance: .ALPHA.1-PROTEINASE INHIBITOR HUMAN
     Indication: ALPHA-1 ANTI-TRYPSIN DEFICIENCY
     Dosage: 5160 MG, Q.WK.
     Route: 042
     Dates: start: 20190808
  3. TADALAFIL. [Concomitant]
     Active Substance: TADALAFIL
  4. TRELEGY ELLIPTA [Concomitant]
     Active Substance: FLUTICASONE FUROATE\UMECLIDINIUM BROMIDE\VILANTEROL TRIFENATATE
  5. METOPROLOL TARTRATE. [Concomitant]
     Active Substance: METOPROLOL TARTRATE
  6. AMLODIPINE BESYLATE. [Concomitant]
     Active Substance: AMLODIPINE BESYLATE
  7. MULTI VITAMIN [Concomitant]
     Active Substance: VITAMINS

REACTIONS (1)
  - Pruritus [Recovering/Resolving]

NARRATIVE: CASE EVENT DATE: 201908
